FAERS Safety Report 7157792-0 (Version None)
Quarter: 2010Q4

REPORT INFORMATION
  Report Type: 
  Country: None (occurrence: None)
  Receive Date: 20101214
  Receipt Date: 20100302
  Transmission Date: 20110411
  Serious: No
  Sender: FDA-Public Use
  Company Number: US-ASTRAZENECA-2010SE06161

PATIENT
  Age: 82 Year
  Sex: Female

DRUGS (4)
  1. CRESTOR [Suspect]
     Route: 048
  2. LESCOL [Suspect]
     Route: 065
  3. PLAVIX [Concomitant]
  4. METOPROLOL [Concomitant]

REACTIONS (2)
  - MYALGIA [None]
  - TACHYCARDIA [None]
